FAERS Safety Report 4704026-X (Version None)
Quarter: 2005Q2

REPORT INFORMATION
  Report Type: 
  Country: None (occurrence: None)
  Receive Date: 20050630
  Receipt Date: 20050621
  Transmission Date: 20051028
  Serious: Yes (Other)
  Sender: FDA-Public Use
  Company Number: BE-ROCHE-408811

PATIENT
  Age: 45 Year
  Sex: Male

DRUGS (1)
  1. VESANOID [Suspect]
     Route: 065

REACTIONS (1)
  - GYNAECOMASTIA [None]
